FAERS Safety Report 10151326 (Version 1)
Quarter: 2014Q2

REPORT INFORMATION
  Report Type: Spontaneous
  Country: US (occurrence: US)
  Receive Date: 20140502
  Receipt Date: 20140502
  Transmission Date: 20141212
  Serious: No
  Sender: FDA-Public Use
  Company Number: US-ASTRAZENECA-2013SE69717

PATIENT
  Sex: Female

DRUGS (2)
  1. PRILOSEC OTC [Suspect]
     Route: 048
  2. LEVOTHYROXINE [Concomitant]

REACTIONS (3)
  - Eye disorder [Recovered/Resolved]
  - Migraine [Recovered/Resolved]
  - Intentional product misuse [Unknown]
